FAERS Safety Report 20041461 (Version 2)
Quarter: 2022Q1

REPORT INFORMATION
  Report Type: Report from Study
  Country: NZ (occurrence: NZ)
  Receive Date: 20211108
  Receipt Date: 20220105
  Transmission Date: 20220423
  Serious: Yes (Other)
  Sender: FDA-Public Use
  Company Number: NZ-ABBVIE-21K-118-4145505-00

PATIENT
  Sex: Male

DRUGS (3)
  1. HUMIRA [Suspect]
     Active Substance: ADALIMUMAB
     Indication: Psoriasis
     Route: 058
     Dates: start: 20191128
  2. COVID-19 VACCINE [Concomitant]
     Indication: COVID-19 immunisation
     Route: 030
  3. COVID-19 VACCINE [Concomitant]
     Route: 030

REACTIONS (4)
  - Apnoea [Unknown]
  - Respiratory arrest [Recovering/Resolving]
  - Night sweats [Unknown]
  - Weight decreased [Unknown]
